FAERS Safety Report 5712287-3 (Version None)
Quarter: 2008Q2

REPORT INFORMATION
  Report Type: 
  Country: None (occurrence: None)
  Receive Date: 20080417
  Receipt Date: 20080404
  Transmission Date: 20081010
  Serious: Yes (Hospitalization)
  Sender: FDA-Public Use
  Company Number: 2007US000637

PATIENT
  Age: 62 Year
  Sex: Female
  Weight: 50.8 kg

DRUGS (4)
  1. AMEVIVE [Suspect]
     Indication: PSORIASIS
     Dosage: INTRAMUSCULAR
     Route: 030
     Dates: start: 20040913, end: 20041108
  2. METHOTREXATE [Concomitant]
  3. ENBREL [Concomitant]
  4. HUMIRA [Concomitant]

REACTIONS (2)
  - PSORIATIC ARTHROPATHY [None]
  - SLEEP APNOEA SYNDROME [None]
